FAERS Safety Report 10949576 (Version 1)
Quarter: 2015Q1

REPORT INFORMATION
  Report Type: Spontaneous
  Country: US (occurrence: US)
  Receive Date: 20150324
  Receipt Date: 20150324
  Transmission Date: 20150721
  Serious: Yes (Other)
  Sender: FDA-Public Use
  Company Number: US-WATSON-2015-05280

PATIENT
  Sex: Male

DRUGS (1)
  1. CHLORPROMAZINE HYDROCHLORIDE (WATSON LABORATORIES) [Suspect]
     Active Substance: CHLORPROMAZINE HYDROCHLORIDE
     Indication: PRODUCT USED FOR UNKNOWN INDICATION
     Dosage: UNK
     Route: 065

REACTIONS (4)
  - Corneal deposits [Unknown]
  - Lenticular opacities [Unknown]
  - Skin discolouration [Recovered/Resolved]
  - Visual acuity reduced [Unknown]
